FAERS Safety Report 4681783-2 (Version None)
Quarter: 2005Q2

REPORT INFORMATION
  Report Type: 
  Country: None (occurrence: None)
  Receive Date: 20050601
  Receipt Date: 20050518
  Transmission Date: 20051028
  Serious: Yes (Other)
  Sender: FDA-Public Use
  Company Number: USA030537530

PATIENT
  Age: 68 Year
  Sex: Female
  Weight: 68 kg

DRUGS (6)
  1. FORTEO [Suspect]
     Indication: OSTEOPOROSIS
     Dosage: 20 UG DAY
     Dates: start: 20030514
  2. FOSAMAX [Concomitant]
  3. SYNTHROID [Concomitant]
  4. NEURONTIN [Concomitant]
  5. DARVOCET-N 100 [Concomitant]
  6. CELEXA [Concomitant]

REACTIONS (20)
  - ABDOMINAL DISTENSION [None]
  - BONE DISORDER [None]
  - ERYTHEMA [None]
  - EYE SWELLING [None]
  - EYELID OEDEMA [None]
  - FOOT OPERATION [None]
  - GENERALISED OEDEMA [None]
  - HYPERSENSITIVITY [None]
  - IMPAIRED HEALING [None]
  - INJECTION SITE RASH [None]
  - LARYNGITIS [None]
  - LYMPHADENOPATHY [None]
  - NASOPHARYNGITIS [None]
  - OEDEMA PERIPHERAL [None]
  - PHARMACEUTICAL PRODUCT COMPLAINT [None]
  - PHARYNGOLARYNGEAL PAIN [None]
  - PYREXIA [None]
  - RASH MACULO-PAPULAR [None]
  - SKIN IRRITATION [None]
  - SWELLING FACE [None]
